FAERS Safety Report 6423779-6 (Version None)
Quarter: 2009Q4

REPORT INFORMATION
  Report Type: 
  Country: None (occurrence: None)
  Receive Date: 20091028
  Receipt Date: 20091015
  Transmission Date: 20100525
  Serious: Yes (Other)
  Sender: FDA-Public Use
  Company Number: DE-1170558

PATIENT
  Age: 46 Year
  Sex: Male

DRUGS (6)
  1. FLUORESCITE [Suspect]
     Dosage: 2.5 ML INTRAVENOUS BOLUS
     Route: 040
     Dates: start: 20090727
  2. METFORMIN HCL [Concomitant]
  3. LISINOPRIL [Concomitant]
  4. AMLODIPINE [Concomitant]
  5. CARVEDILOL [Concomitant]
  6. BYETTA [Concomitant]

REACTIONS (6)
  - COLD SWEAT [None]
  - HEART RATE INCREASED [None]
  - HYPERGLYCAEMIA [None]
  - HYPERTENSION [None]
  - LOSS OF CONSCIOUSNESS [None]
  - NAUSEA [None]
